FAERS Safety Report 20551610 (Version 1)
Quarter: 2022Q1

REPORT INFORMATION
  Report Type: Report from Study
  Country: CA (occurrence: CA)
  Receive Date: 20220304
  Receipt Date: 20220304
  Transmission Date: 20220423
  Serious: Yes (Other)
  Sender: FDA-Public Use
  Company Number: CA-JNJFOC-20220139653

PATIENT
  Age: 1 Decade
  Sex: Male

DRUGS (2)
  1. REMICADE [Suspect]
     Active Substance: INFLIXIMAB
     Indication: Juvenile idiopathic arthritis
     Route: 042
     Dates: start: 20211006
  2. REMICADE [Suspect]
     Active Substance: INFLIXIMAB
     Dosage: DOSE: 80 MG
     Route: 042

REACTIONS (2)
  - Juvenile idiopathic arthritis [Unknown]
  - Urticaria [Unknown]
